FAERS Safety Report 4871025-7 (Version None)
Quarter: 2005Q4

REPORT INFORMATION
  Report Type: 
  Country: None (occurrence: None)
  Receive Date: 20051229
  Receipt Date: 20051222
  Transmission Date: 20060501
  Serious: Yes (Hospitalization)
  Sender: FDA-Public Use
  Company Number: DEU-2005-0001894

PATIENT
  Age: 55 Year
  Sex: Male
  Weight: 100 kg

DRUGS (13)
  1. MORPHINE SULFATE [Suspect]
     Indication: PAIN
     Dosage: 400 MG, DAILY, ORAL
     Route: 048
     Dates: start: 20051021, end: 20051114
  2. ALENDRONIC ACID (ALENDRONIC ACID) [Concomitant]
  3. ATROVENT [Concomitant]
  4. BERODUAL (FENOTEROL HYDROBROMIDE, IPRATROPIUM BROMIDE) [Concomitant]
  5. CARBAMAZEPINE [Concomitant]
  6. PREDNISONE [Concomitant]
  7. FORMOTEROL (FORMOTEROL) [Concomitant]
  8. ISOMOL (SODIUM BICARBONATE, POTASSIUM CHLORIDE, SODIUM CHLORIDE, MACRO [Concomitant]
  9. NITROLINGUAL (GLYCERYL TRINITRATE) [Concomitant]
  10. DIPYRONE TAB [Concomitant]
  11. OMEPRAZOLE [Concomitant]
  12. TRIAZID (HYDROCHLOROTHIAZIDE, TRIAMTERENE) [Concomitant]
  13. ZOPICLONE (ZOPICLONE) [Concomitant]

REACTIONS (1)
  - GRAND MAL CONVULSION [None]
